FAERS Safety Report 16218944 (Version 3)
Quarter: 2020Q2

REPORT INFORMATION
  Report Type: Spontaneous
  Country: US (occurrence: US)
  Receive Date: 20190419
  Receipt Date: 20200605
  Transmission Date: 20200713
  Serious: Yes (Hospitalization)
  Sender: FDA-Public Use
  Company Number: US-PFIZER INC-2019169075

PATIENT
  Age: 79 Year
  Sex: Male
  Weight: 97.07 kg

DRUGS (2)
  1. TOVIAZ [Suspect]
     Active Substance: FESOTERODINE FUMARATE
     Dosage: UNK (8MG TABLET)
  2. TOVIAZ [Suspect]
     Active Substance: FESOTERODINE FUMARATE
     Indication: URINARY INCONTINENCE
     Dosage: 8 MG, 2X/DAY (2 TABLETS TWICE DAILY BY MOUTH )
     Route: 048
     Dates: start: 201902

REACTIONS (4)
  - Product use issue [Unknown]
  - Depression [Unknown]
  - Therapeutic product effect delayed [Recovered/Resolved]
  - Off label use [Unknown]
